FAERS Safety Report 8891029 (Version 1)
Quarter: 2012Q4

REPORT INFORMATION
  Report Type: 
  Country: DE (occurrence: DE)
  Receive Date: 20121107
  Receipt Date: 20121107
  Transmission Date: 20130627
  Serious: Yes (Hospitalization, Other)
  Sender: FDA-Public Use
  Company Number: DE-TEVA-351039GER

PATIENT
  Age: 54 Year
  Sex: Female
  Weight: 84 kg

DRUGS (16)
  1. COPAXONE [Suspect]
     Indication: MULTIPLE SCLEROSIS
     Dosage: 20 Milligram Daily;
     Route: 058
     Dates: start: 20120130
  2. NEUPRO [Concomitant]
     Indication: RESTLESS LEGS SYNDROME
     Dosage: 8 Milligram Daily;
     Route: 003
     Dates: start: 20101014
  3. ATACAND [Concomitant]
     Dosage: 8 Milligram Daily;
  4. AZATHIOPRIN [Concomitant]
     Dosage: 50 Milligram Daily;
  5. BACLOFEN [Concomitant]
     Dosage: 20 Milligram Daily;
  6. BENZBROMARONE [Concomitant]
     Dosage: 150 Milligram Daily;
  7. CALCITROL NEFRO [Concomitant]
  8. FENTANYL [Concomitant]
  9. GABAPENTIN [Concomitant]
     Dosage: 900 Milligram Daily;
  10. INNOHEP ANTI-XA [Concomitant]
     Dosage: 3500 IU (International Unit) Daily;
  11. NOVAMINSULFON [Concomitant]
     Dosage: 1000 Milligram Daily;
  12. OMEPRAZOLE [Concomitant]
     Dosage: 40  Daily;
  13. PREDNISOLONE [Concomitant]
     Dosage: 5 Milligram Daily;
  14. RESTEX [Concomitant]
  15. TORASEMIDE [Concomitant]
     Dosage: 10 Milligram Daily;
  16. TRIMIPRAMINE [Concomitant]
     Dosage: 50 Milligram Daily;

REACTIONS (4)
  - Granulomatosis with polyangiitis [Not Recovered/Not Resolved]
  - Glomerulonephritis rapidly progressive [Recovered/Resolved]
  - Metabolic encephalopathy [Recovered/Resolved]
  - Paresis [Unknown]
